FAERS Safety Report 5755655-6 (Version None)
Quarter: 2008Q2

REPORT INFORMATION
  Report Type: 
  Country: None (occurrence: None)
  Receive Date: 20080530
  Receipt Date: 20080530
  Transmission Date: 20081010
  Serious: Yes (Death)
  Sender: FDA-Public Use
  Company Number: None

PATIENT
  Age: 33 Year
  Sex: Male
  Weight: 95.2554 kg

DRUGS (1)
  1. METHADONE UNK UNK [Suspect]
     Indication: PAIN MANAGEMENT
     Dosage: BID PO
     Route: 048
     Dates: start: 20060701, end: 20080302

REACTIONS (1)
  - DRUG TOXICITY [None]
